FAERS Safety Report 7262289-3 (Version None)
Quarter: 2011Q1

REPORT INFORMATION
  Report Type: 
  Country: None (occurrence: None)
  Receive Date: 20110130
  Receipt Date: 20101112
  Transmission Date: 20110831
  Serious: No
  Sender: FDA-Public Use
  Company Number: US-ABBOTT-10P-163-0685611-00

PATIENT
  Sex: Male
  Weight: 81.72 kg

DRUGS (4)
  1. PREVACID [Concomitant]
     Indication: HERNIA
  2. IBUPROFEN [Concomitant]
     Indication: PAIN
  3. HUMIRA [Suspect]
     Indication: PSORIATIC ARTHROPATHY
     Dates: start: 20100203, end: 20101022
  4. MEDICAL CANNABIS [Concomitant]
     Indication: PAIN

REACTIONS (2)
  - PAIN IN EXTREMITY [None]
  - HEADACHE [None]
